FAERS Safety Report 25039706 (Version 1)
Quarter: 2025Q1

REPORT INFORMATION
  Report Type: Spontaneous
  Country: NO (occurrence: NO)
  Receive Date: 20250305
  Receipt Date: 20250305
  Transmission Date: 20250408
  Serious: Yes (Hospitalization, Other)
  Sender: NORDIC PHARMA
  Company Number: None

PATIENT
  Age: 54 Year
  Sex: Male

DRUGS (5)
  1. METHOTREXATE [Suspect]
     Active Substance: METHOTREXATE
     Indication: Psoriatic arthropathy
     Route: 050
     Dates: start: 20220101, end: 20241017
  2. IBUPROFEN [Concomitant]
     Active Substance: IBUPROFEN
  3. YUFLYMA [Concomitant]
     Active Substance: ADALIMUMAB-AATY
     Indication: Psoriatic arthropathy
     Route: 050
     Dates: start: 20230301, end: 20241017
  4. ACETAMINOPHEN [Concomitant]
     Active Substance: ACETAMINOPHEN
  5. Folsyre Orifarm [Concomitant]

REACTIONS (10)
  - Encephalitis [Recovering/Resolving]
  - Headache [Recovering/Resolving]
  - Encephalopathy [Recovering/Resolving]
  - Memory impairment [Recovering/Resolving]
  - Pyrexia [Recovering/Resolving]
  - Myelitis [Recovering/Resolving]
  - Encephalomyelitis [Recovering/Resolving]
  - Neurological symptom [Recovering/Resolving]
  - Tremor [Recovering/Resolving]
  - Visual impairment [Recovering/Resolving]

NARRATIVE: CASE EVENT DATE: 20240901
